FAERS Safety Report 9283742 (Version 1)
Quarter: 2013Q2

REPORT INFORMATION
  Report Type: Spontaneous
  Country: DE (occurrence: DE)
  Receive Date: 20130510
  Receipt Date: 20130510
  Transmission Date: 20140414
  Serious: Yes (Other)
  Sender: FDA-Public Use
  Company Number: DE-TEVA-401892GER

PATIENT
  Age: 0 Year
  Sex: Male

DRUGS (2)
  1. SALBUTAMOL [Suspect]
     Route: 064
  2. KREON [Concomitant]
     Route: 064

REACTIONS (1)
  - Hypoglycaemia neonatal [Recovered/Resolved]
